FAERS Safety Report 11159175 (Version 1)
Quarter: 2015Q2

REPORT INFORMATION
  Report Type: Spontaneous
  Country: CN (occurrence: CN)
  Receive Date: 20150603
  Receipt Date: 20150603
  Transmission Date: 20150821
  Serious: Yes (Other)
  Sender: FDA-Public Use
  Company Number: CN-BAXTER-2015BAX027886

PATIENT
  Age: 71 Year
  Sex: Male
  Weight: 70 kg

DRUGS (1)
  1. BUMINATE 5% [Suspect]
     Active Substance: ALBUMIN (HUMAN)
     Indication: OESOPHAGEAL CARCINOMA
     Route: 042
     Dates: start: 20141130, end: 20141130

REACTIONS (1)
  - Infusion site phlebitis [Recovering/Resolving]

NARRATIVE: CASE EVENT DATE: 20141130
